FAERS Safety Report 7221210-4 (Version None)
Quarter: 2011Q1

REPORT INFORMATION
  Report Type: 
  Country: None (occurrence: None)
  Receive Date: 20110103
  Receipt Date: 20101221
  Transmission Date: 20110831
  Serious: Yes (Other)
  Sender: FDA-Public Use
  Company Number: 2010MA003884

PATIENT
  Age: 27 Year
  Sex: Male

DRUGS (11)
  1. CODEINE (CODEINE) [Suspect]
     Dates: start: 20020820
  2. LITHIUM [Concomitant]
  3. VENLAFAXINE [Concomitant]
  4. NUROFEN (IBUPROFEN) [Suspect]
     Dates: start: 20020820
  5. LOFEPRAMINE (LOFEPRAMINE) [Suspect]
  6. ANADIN IBUPROFEN (NO PREF. NAME) [Suspect]
     Dates: start: 20020820, end: 20020820
  7. FLUOXETINE [Concomitant]
  8. PAROXETINE HCL [Suspect]
     Indication: PHOBIA
     Dosage: 20 MG; BID
     Dates: start: 19990901, end: 20021201
  9. ASPIRIN [Suspect]
  10. IBUPROFEN [Suspect]
     Indication: INTENTIONAL OVERDOSE
     Dosage: X1
     Dates: start: 20020820, end: 20020820
  11. PROZAC [Concomitant]

REACTIONS (11)
  - SEXUAL DYSFUNCTION [None]
  - SUICIDAL IDEATION [None]
  - DRY MOUTH [None]
  - VISION BLURRED [None]
  - AGGRESSION [None]
  - SOCIAL PHOBIA [None]
  - OVERDOSE [None]
  - DEPRESSION [None]
  - CONSTIPATION [None]
  - DRUG WITHDRAWAL SYNDROME [None]
  - LOSS OF EMPLOYMENT [None]
